FAERS Safety Report 15450267 (Version 1)
Quarter: 2018Q4

REPORT INFORMATION
  Report Type: Spontaneous
  Country: US (occurrence: US)
  Receive Date: 20181001
  Receipt Date: 20181001
  Transmission Date: 20190204
  Serious: No
  Sender: FDA-Public Use
  Company Number: US-PFIZER INC-2018388658

PATIENT
  Sex: Female

DRUGS (1)
  1. PREMARIN [Suspect]
     Active Substance: ESTROGENS, CONJUGATED
     Indication: DYSPAREUNIA
     Dosage: 0.5 G, 2X/WEEK
     Dates: start: 201809

REACTIONS (6)
  - Headache [Unknown]
  - Hypertension [Unknown]
  - Pain in extremity [Unknown]
  - Vaginal discharge [Unknown]
  - Breast pain [Unknown]
  - Tinnitus [Unknown]
